FAERS Safety Report 25254301 (Version 1)
Quarter: 2025Q2

REPORT INFORMATION
  Report Type: Report from Study
  Country: FR (occurrence: FR)
  Receive Date: 20250430
  Receipt Date: 20250430
  Transmission Date: 20250717
  Serious: Yes (Death)
  Sender: ABBVIE
  Company Number: FR-ABBVIE-6143346

PATIENT
  Age: 77 Year
  Sex: Male

DRUGS (2)
  1. FOSCARBIDOPA\FOSLEVODOPA [Suspect]
     Active Substance: FOSCARBIDOPA\FOSLEVODOPA
     Indication: Parkinson^s disease
     Route: 058
     Dates: start: 20250206, end: 20250328
  2. CLOZAPINE [Concomitant]
     Active Substance: CLOZAPINE
     Indication: Confusional state
     Dosage: DOSE: 6.25?FORM: PER ORAL
     Route: 048
     Dates: start: 20221209, end: 20250328

REACTIONS (3)
  - Parkinson^s disease [Fatal]
  - Urinary tract infection [Recovered/Resolved]
  - Cognitive disorder [Unknown]

NARRATIVE: CASE EVENT DATE: 20250101
